FAERS Safety Report 4326748-5 (Version None)
Quarter: 2004Q1

REPORT INFORMATION
  Report Type: 
  Country: None (occurrence: None)
  Receive Date: 20040322
  Receipt Date: 20031231
  Transmission Date: 20041129
  Serious: No
  Sender: FDA-Public Use
  Company Number: US-JNJOFC-20040100371

PATIENT
  Age: 21 Year
  Sex: Female
  Weight: 48.0813 kg

DRUGS (2)
  1. ORTHO TRI-CYCLEN LO [Suspect]
     Indication: CONTRACEPTION
     Dosage: 1 DOSE(S), 1 IN 1 DAY , ORAL
     Route: 048
     Dates: start: 20030601
  2. MINOCYCLINE HCL [Concomitant]

REACTIONS (1)
  - METRORRHAGIA [None]
